FAERS Safety Report 6439982-5 (Version None)
Quarter: 2009Q4

REPORT INFORMATION
  Report Type: 
  Country: None (occurrence: None)
  Receive Date: 20091110
  Receipt Date: 20091026
  Transmission Date: 20100525
  Serious: Yes (Death, Hospitalization)
  Sender: FDA-Public Use
  Company Number: 2009AC000078

PATIENT
  Sex: Male

DRUGS (5)
  1. DIGOXIN [Suspect]
     Dosage: 0.125 MG;QD;PO
     Route: 048
     Dates: start: 20071001, end: 20080101
  2. ASPIRIN [Concomitant]
  3. COREG [Concomitant]
  4. LASIX [Concomitant]
  5. CAPTOPRIL [Concomitant]

REACTIONS (3)
  - AORTIC VALVE INCOMPETENCE [None]
  - INJURY [None]
  - SUDDEN DEATH [None]
